FAERS Safety Report 20162365 (Version 1)
Quarter: 2021Q4

REPORT INFORMATION
  Report Type: Spontaneous
  Country: NL (occurrence: NL)
  Receive Date: 20211208
  Receipt Date: 20211208
  Transmission Date: 20220303
  Serious: Yes (Other)
  Sender: FDA-Public Use
  Company Number: NL-TAKEDA-2021TJP124558

PATIENT
  Age: 35 Year
  Sex: Female

DRUGS (1)
  1. LEUPROLIDE ACETATE [Suspect]
     Active Substance: LEUPROLIDE ACETATE
     Indication: Product used for unknown indication
     Route: 065

REACTIONS (5)
  - Hyperpyrexia [Unknown]
  - Idiopathic intracranial hypertension [Unknown]
  - Hot flush [Unknown]
  - Hyperhidrosis [Unknown]
  - Sleep disorder [Unknown]
